FAERS Safety Report 6734566-3 (Version None)
Quarter: 2010Q2

REPORT INFORMATION
  Report Type: 
  Country: None (occurrence: None)
  Receive Date: 20100520
  Receipt Date: 20100324
  Transmission Date: 20101027
  Serious: No
  Sender: FDA-Public Use
  Company Number: US-ALLERGAN-1003870US

PATIENT
  Age: 77 Year
  Sex: Female

DRUGS (15)
  1. SANCTURA XR [Suspect]
     Indication: URINARY INCONTINENCE
     Dosage: 60 MG, UNK
     Route: 048
  2. METFORMIN HYDROCHLORIDE [Concomitant]
     Indication: DIABETES MELLITUS
  3. DILTIAZEM HCL [Concomitant]
     Indication: HEART RATE IRREGULAR
  4. DILTIAZEM HCL [Concomitant]
     Indication: HYPERTENSION
  5. ASPIRIN [Concomitant]
  6. VITAMIN A [Concomitant]
  7. VITAMIN D [Concomitant]
  8. VITAMIN E [Concomitant]
  9. GARLIC [Concomitant]
  10. FISH OIL [Concomitant]
  11. CINNAMON [Concomitant]
  12. POMEGRANATE [Concomitant]
  13. BETA CAROTENE [Concomitant]
  14. CRANBERRY CONCENTRATE [Concomitant]
  15. RED YEAST [Concomitant]

REACTIONS (3)
  - BLOOD GLUCOSE INCREASED [None]
  - DRY MOUTH [None]
  - VISION BLURRED [None]
